FAERS Safety Report 13603887 (Version 1)
Quarter: 2017Q2

REPORT INFORMATION
  Report Type: Report from Study
  Country: US (occurrence: US)
  Receive Date: 20170602
  Receipt Date: 20170602
  Transmission Date: 20170830
  Serious: No
  Sender: FDA-Public Use
  Company Number: PHEH2017US015483

PATIENT
  Age: 85 Year
  Sex: Female

DRUGS (2)
  1. ENTRESTO [Suspect]
     Active Substance: SACUBITRIL\VALSARTAN
     Indication: PRODUCT USED FOR UNKNOWN INDICATION
     Dosage: 50 MG (24/26 MG), UNK
     Route: 048
     Dates: start: 20170407
  2. ENTRESTO [Suspect]
     Active Substance: SACUBITRIL\VALSARTAN
     Dosage: 100 MG (49/51 MG), QD
     Route: 048
     Dates: start: 20170418

REACTIONS (4)
  - Inappropriate schedule of drug administration [Unknown]
  - Drug prescribing error [Unknown]
  - Pruritus [Unknown]
  - Eye pruritus [Unknown]

NARRATIVE: CASE EVENT DATE: 20170417
